FAERS Safety Report 4701105-8 (Version None)
Quarter: 2005Q2

REPORT INFORMATION
  Report Type: 
  Country: None (occurrence: None)
  Receive Date: 20050628
  Receipt Date: 20050601
  Transmission Date: 20051028
  Serious: Yes (Other)
  Sender: FDA-Public Use
  Company Number: FR-BRISTOL-MYERS SQUIBB COMPANY-12990883

PATIENT
  Age: 51 Year
  Sex: Female

DRUGS (7)
  1. VASTEN [Suspect]
     Indication: MYOCARDIAL INFARCTION
     Route: 048
     Dates: start: 20040201, end: 20050525
  2. RAMIPRIL [Concomitant]
     Indication: CORONARY ARTERY DISEASE
     Route: 048
     Dates: start: 20040201
  3. ACEBUTOLOL [Concomitant]
  4. KARDEGIC [Concomitant]
     Indication: CORONARY ARTERY DISEASE
     Route: 048
     Dates: start: 20040201
  5. OMEPRAZOLE [Concomitant]
  6. ATENOLOL [Concomitant]
     Indication: CORONARY ARTERY DISEASE
     Route: 048
     Dates: start: 20040201
  7. AMLODIPINE BESYLATE [Concomitant]
     Indication: CORONARY ARTERY DISEASE
     Route: 048
     Dates: start: 20040401

REACTIONS (3)
  - HAEMATOMA [None]
  - MUSCLE RUPTURE [None]
  - MYALGIA [None]
